FAERS Safety Report 26117847 (Version 1)
Quarter: 2025Q4

REPORT INFORMATION
  Report Type: Other
  Country: EU (occurrence: EU)
  Receive Date: 20251203
  Receipt Date: 20251203
  Transmission Date: 20260118
  Serious: Yes (Hospitalization)
  Sender: AMPHASTAR
  Company Number: EU-Amphastar Pharmaceuticals, Inc.-2189738

PATIENT
  Age: 62 Year
  Sex: Female

DRUGS (5)
  1. BAQSIMI [Suspect]
     Active Substance: GLUCAGON
     Indication: Product used for unknown indication
  2. CALCIUM GLUCONATE [Suspect]
     Active Substance: CALCIUM GLUCONATE
  3. EPINEPHRINE HYDROCHLORIDE [Suspect]
     Active Substance: EPINEPHRINE HYDROCHLORIDE
  4. CALCIUM GLUCONATE [Suspect]
     Active Substance: CALCIUM GLUCONATE
  5. GLUCOSE, LIQUID [Suspect]
     Active Substance: GLUCOSE, LIQUID

REACTIONS (4)
  - Compartment syndrome [Recovering/Resolving]
  - Oedema [Recovering/Resolving]
  - Venous thrombosis [Recovering/Resolving]
  - Inflammation [Recovering/Resolving]
